FAERS Safety Report 8837313 (Version 2)
Quarter: 2015Q2

REPORT INFORMATION
  Report Type: Report from Study
  Country: US (occurrence: US)
  Receive Date: 20121011
  Receipt Date: 20150425
  Transmission Date: 20150821
  Serious: Yes (Death, Hospitalization, Other)
  Sender: FDA-Public Use
  Company Number: US-ROCHE-1128942

PATIENT
  Sex: Female

DRUGS (13)
  1. DESMOPRESSIN ACETATE. [Concomitant]
     Active Substance: DESMOPRESSIN ACETATE
     Route: 050
  2. ADVIL [Concomitant]
     Active Substance: IBUPROFEN
  3. PROVIGIL [Concomitant]
     Active Substance: MODAFINIL
     Route: 065
  4. LORTAB (UNITED STATES) [Concomitant]
  5. AMOXIL [Concomitant]
     Active Substance: AMOXICILLIN
     Route: 065
  6. KEPPRA [Concomitant]
     Active Substance: LEVETIRACETAM
     Route: 065
  7. CORTEF [Concomitant]
     Active Substance: HYDROCORTISONE
     Route: 065
  8. TRAZODONE [Concomitant]
     Active Substance: TRAZODONE HYDROCHLORIDE
     Route: 065
  9. TRAZODONE [Concomitant]
     Active Substance: TRAZODONE HYDROCHLORIDE
     Route: 065
  10. NUTROPIN AQ [Suspect]
     Active Substance: SOMATROPIN
     Indication: HYPOPITUITARISM
     Route: 058
     Dates: start: 20020816
  11. NAPROSYN [Concomitant]
     Active Substance: NAPROXEN
     Route: 065
  12. SYNTHROID [Concomitant]
     Active Substance: LEVOTHYROXINE SODIUM
     Route: 065
  13. CELEXA (UNITED STATES) [Concomitant]
     Route: 065

REACTIONS (26)
  - Death [Fatal]
  - Hypoventilation [Unknown]
  - Unresponsive to stimuli [Unknown]
  - Bradycardia [Unknown]
  - Cerebral atrophy [Unknown]
  - Headache [Unknown]
  - Pulmonary hypertension [Unknown]
  - Sinusitis [Unknown]
  - Memory impairment [Unknown]
  - Weight decreased [Unknown]
  - Pain [Unknown]
  - Visual acuity reduced [Unknown]
  - Hypoxia [Unknown]
  - Hydrocephalus [Unknown]
  - Dyspnoea [Unknown]
  - Right ventricular dysfunction [Unknown]
  - Tremor [Unknown]
  - Adipomastia [Unknown]
  - Ear infection [Unknown]
  - Somnolence [Unknown]
  - Skin discolouration [Unknown]
  - Right ventricular failure [Unknown]
  - Dizziness [Unknown]
  - Fatigue [Unknown]
  - Erythema [Unknown]
  - Physical examination abnormal [Unknown]
